FAERS Safety Report 5012517-X (Version None)
Quarter: 2006Q2

REPORT INFORMATION
  Report Type: 
  Country: None (occurrence: None)
  Receive Date: 20060411
  Receipt Date: 20060208
  Transmission Date: 20061013
  Serious: No
  Sender: FDA-Public Use
  Company Number: 2006S1000033

PATIENT
  Age: 22 Year
  Sex: Male
  Weight: 82 kg

DRUGS (7)
  1. CUBICIN [Suspect]
     Indication: ENDOCARDITIS STAPHYLOCOCCAL
     Dosage: 500 MG; Q24H; IV
     Route: 042
     Dates: start: 20060202, end: 20060208
  2. CIPROFLOXACIN HCL [Concomitant]
  3. SODIUM BICARBONATE [Concomitant]
  4. MEREM [Concomitant]
  5. VORICONAZOLE [Concomitant]
  6. VANCOMYCIN [Concomitant]
  7. MUCOMYST [Concomitant]

REACTIONS (1)
  - CARDIOMYOPATHY [None]
